FAERS Safety Report 20731289 (Version 1)
Quarter: 2022Q2

REPORT INFORMATION
  Report Type: Spontaneous
  Country: US (occurrence: None)
  Receive Date: 20220420
  Receipt Date: 20220420
  Transmission Date: 20220721
  Serious: Yes (Other)
  Sender: FDA-Public Use
  Company Number: None

PATIENT
  Age: 34 Year
  Sex: Female
  Weight: 80.29 kg

DRUGS (1)
  1. MIRENA [Suspect]
     Active Substance: LEVONORGESTREL
     Indication: Contraception
     Dates: start: 20210201, end: 20220418

REACTIONS (5)
  - Vaginal haemorrhage [None]
  - Muscle spasms [None]
  - Thrombosis [None]
  - Pregnancy test positive [None]
  - Pregnancy with contraceptive device [None]

NARRATIVE: CASE EVENT DATE: 20220409
